FAERS Safety Report 13386002 (Version 1)
Quarter: 2017Q1

REPORT INFORMATION
  Report Type: Report from Study
  Country: US (occurrence: US)
  Receive Date: 20170330
  Receipt Date: 20170330
  Transmission Date: 20170429
  Serious: No
  Sender: FDA-Public Use
  Company Number: PHEH2017US009305

PATIENT
  Age: 30 Year
  Sex: Female
  Weight: 67.13 kg

DRUGS (2)
  1. COSENTYX [Suspect]
     Active Substance: SECUKINUMAB
     Dosage: 300 MG, QW
     Route: 058
     Dates: start: 20170328
  2. COSENTYX [Suspect]
     Active Substance: SECUKINUMAB
     Indication: PRODUCT USED FOR UNKNOWN INDICATION
     Dosage: 300 MG, QW
     Route: 058
     Dates: start: 20170224

REACTIONS (6)
  - Injection site erythema [Unknown]
  - Injection site swelling [Unknown]
  - Injection site reaction [Unknown]
  - Injection site pain [Unknown]
  - Mass [Unknown]
  - Dizziness [Unknown]

NARRATIVE: CASE EVENT DATE: 20170328
